FAERS Safety Report 4416371-6 (Version None)
Quarter: 2004Q3

REPORT INFORMATION
  Report Type: 
  Country: None (occurrence: None)
  Receive Date: 20040805
  Receipt Date: 20040629
  Transmission Date: 20050211
  Serious: Yes (Other)
  Sender: FDA-Public Use
  Company Number: 371485

PATIENT
  Sex: Female

DRUGS (3)
  1. DILATREND [Suspect]
     Indication: HYPERTENSION
     Dosage: 25MG TWICE PER DAY
     Route: 048
     Dates: start: 20030615
  2. FENOFIBRATE [Concomitant]
  3. DUSPATAL [Concomitant]
     Dates: start: 20040415

REACTIONS (13)
  - ABDOMINAL PAIN [None]
  - BLOOD CHOLESTEROL INCREASED [None]
  - BLOOD TRIGLYCERIDES INCREASED [None]
  - CORNEAL DISORDER [None]
  - DEPRESSED MOOD [None]
  - DIZZINESS [None]
  - EYE IRRITATION [None]
  - FATIGUE [None]
  - KERATOCONJUNCTIVITIS SICCA [None]
  - NAUSEA [None]
  - PRURITUS [None]
  - SLEEP DISORDER [None]
  - WEIGHT INCREASED [None]
